FAERS Safety Report 16728462 (Version 3)
Quarter: 2019Q3

REPORT INFORMATION
  Report Type: Spontaneous
  Country: GB (occurrence: GB)
  Receive Date: 20190822
  Receipt Date: 20190927
  Transmission Date: 20191005
  Serious: Yes (Other)
  Sender: FDA-Public Use
  Company Number: GB-TEVA-2019-GB-1094913

PATIENT
  Sex: Male

DRUGS (1)
  1. ESOMEPRAZOLE (ACTAVIS) [Suspect]
     Active Substance: ESOMEPRAZOLE
     Indication: HIATUS HERNIA
     Dosage: 20 MILLIGRAM DAILY;
     Route: 048
     Dates: start: 2010

REACTIONS (12)
  - Barrett^s oesophagus [Unknown]
  - Laryngeal inflammation [Unknown]
  - Chest discomfort [Unknown]
  - Oesophagitis [Not Recovered/Not Resolved]
  - Weight decreased [Unknown]
  - Dysphonia [Unknown]
  - Eructation [Unknown]
  - Flatulence [Unknown]
  - Dyspnoea [Unknown]
  - Gastric pH decreased [Unknown]
  - Abdominal distension [Unknown]
  - Nausea [Unknown]
